FAERS Safety Report 8621892-6 (Version None)
Quarter: 2012Q3

REPORT INFORMATION
  Report Type: 
  Country: None (occurrence: None)
  Receive Date: 20120822
  Receipt Date: 20120822
  Transmission Date: 20120928
  Serious: Yes (Hospitalization)
  Sender: FDA-Public Use
  Company Number: None

PATIENT
  Sex: Male
  Weight: 96.6 kg

DRUGS (12)
  1. ATENOLOL [Concomitant]
  2. ATORVASTATIN [Concomitant]
  3. ENOXAPARIN SODIUM [Concomitant]
  4. ACETAMINOPHEN [Concomitant]
  5. MG VERDA [Concomitant]
  6. PLAVIX [Concomitant]
  7. ASPIRIN [Concomitant]
  8. SLOW-K [Concomitant]
  9. CISPLATIN [Suspect]
     Dosage: 65 MG
     Dates: end: 20120710
  10. RBC 1 UNIT [Concomitant]
  11. VINORELBINE TARTRATE [Suspect]
     Dosage: 65 MG
     Dates: end: 20120703
  12. INNOHEP [Concomitant]

REACTIONS (4)
  - BODY TEMPERATURE INCREASED [None]
  - TROPONIN INCREASED [None]
  - BLOOD PRESSURE DECREASED [None]
  - DEEP VEIN THROMBOSIS [None]
